FAERS Safety Report 11156290 (Version 7)
Quarter: 2016Q1

REPORT INFORMATION
  Report Type: Spontaneous
  Country: ES (occurrence: ES)
  Receive Date: 20150602
  Receipt Date: 20160215
  Transmission Date: 20160525
  Serious: Yes (Other)
  Sender: FDA-Public Use
  Company Number: ES-AMGEN-ESPSP2015048931

PATIENT
  Sex: Female

DRUGS (16)
  1. RESERPINE. [Concomitant]
     Active Substance: RESERPINE
     Dosage: UNK
  2. PROLIA [Suspect]
     Active Substance: DENOSUMAB
     Indication: PRODUCT USED FOR UNKNOWN INDICATION
     Dosage: 60 MG, UNK
     Route: 065
  3. EZETROL [Concomitant]
     Active Substance: EZETIMIBE
     Dosage: UNK
  4. MADOPAR [Concomitant]
     Active Substance: BENSERAZIDE HYDROCHLORIDE\LEVODOPA
     Dosage: UNK
  5. ANASTROZOL [Concomitant]
     Active Substance: ANASTROZOLE
     Dosage: UNK
  6. EUTIROX [Concomitant]
     Active Substance: LEVOTHYROXINE SODIUM
     Dosage: UNK
  7. HIDROFEROL [Concomitant]
     Active Substance: CALCIFEDIOL
     Dosage: UNK
  8. TRANKIMAZIN [Concomitant]
     Active Substance: ALPRAZOLAM
     Dosage: UNK
  9. MOTILIUM [Concomitant]
     Active Substance: DOMPERIDONE
     Dosage: UNK
  10. ZADITEN [Concomitant]
     Active Substance: KETOTIFEN FUMARATE
     Dosage: UNK
  11. ROPINIROL [Concomitant]
     Active Substance: ROPINIROLE
     Dosage: UNK
  12. NOCTAMID [Concomitant]
     Active Substance: LORMETAZEPAM
     Dosage: UNK
  13. TERBASMIN                          /00199201/ [Concomitant]
     Dosage: UNK
  14. ZARATOR                            /01326101/ [Concomitant]
     Active Substance: ATORVASTATIN CALCIUM
     Dosage: UNK
  15. MASTICAL [Concomitant]
     Dosage: UNK
  16. RUPAFIN [Concomitant]
     Active Substance: RUPATADINE FUMARATE
     Dosage: UNK

REACTIONS (16)
  - Lymphadenectomy [Unknown]
  - Lymphoedema [Unknown]
  - Mobility decreased [Unknown]
  - Peripheral swelling [Not Recovered/Not Resolved]
  - Injection site swelling [Not Recovered/Not Resolved]
  - Wrong technique in product usage process [Unknown]
  - Pain in extremity [Not Recovered/Not Resolved]
  - Neoplasm [Unknown]
  - Foot fracture [Unknown]
  - Meningioma [Unknown]
  - Nausea [Unknown]
  - Headache [Unknown]
  - Bronchitis [Not Recovered/Not Resolved]
  - Nasopharyngitis [Not Recovered/Not Resolved]
  - Rib fracture [Unknown]
  - Oedema [Unknown]
